FAERS Safety Report 5719992-3 (Version None)
Quarter: 2008Q2

REPORT INFORMATION
  Report Type: 
  Country: None (occurrence: None)
  Receive Date: 20080424
  Receipt Date: 20080424
  Transmission Date: 20081010
  Serious: No
  Sender: FDA-Public Use
  Company Number: None

PATIENT
  Age: 58 Year
  Sex: Male
  Weight: 82 kg

DRUGS (1)
  1. VARENICLINE [Suspect]
     Indication: SMOKING CESSATION THERAPY
     Dosage: 0.5 MG EVERY DAY PO
     Route: 048
     Dates: start: 20080106, end: 20080107

REACTIONS (2)
  - DYSPEPSIA [None]
  - SELF-MEDICATION [None]
